FAERS Safety Report 13102442 (Version 1)
Quarter: 2017Q1

REPORT INFORMATION
  Report Type: Spontaneous
  Country: US (occurrence: US)
  Receive Date: 20170110
  Receipt Date: 20170110
  Transmission Date: 20170428
  Serious: No
  Sender: FDA-Public Use
  Company Number: US-TARO-2016TAR00268

PATIENT
  Sex: Female

DRUGS (2)
  1. CALCIPOTRIENE CREAM 0.005% [Concomitant]
     Active Substance: CALCIPOTRIENE
     Indication: NAIL PSORIASIS
     Dosage: UNK
     Route: 061
     Dates: start: 201505
  2. DESOXIMETASONE CREAM USP 0.25% [Suspect]
     Active Substance: DESOXIMETASONE
     Indication: NAIL PSORIASIS
     Dosage: UNK
     Route: 061
     Dates: start: 201505

REACTIONS (1)
  - Drug ineffective [Unknown]

NARRATIVE: CASE EVENT DATE: 201505
